FAERS Safety Report 11107671 (Version 1)
Quarter: 2015Q2

REPORT INFORMATION
  Report Type: Spontaneous
  Country: ES (occurrence: ES)
  Receive Date: 20150512
  Receipt Date: 20150512
  Transmission Date: 20150821
  Serious: Yes (Other)
  Sender: FDA-Public Use
  Company Number: ES-PERRIGO-15ES004761

PATIENT
  Age: 42 Year
  Sex: Male

DRUGS (1)
  1. MESALAMINE RX 66.667 MG/ML 2N9 [Suspect]
     Active Substance: MESALAMINE
     Indication: COLITIS ULCERATIVE
     Dosage: 3.2 G, QD
     Route: 065

REACTIONS (4)
  - Hypersensitivity [Recovering/Resolving]
  - Eosinophilia [Recovering/Resolving]
  - Chest pain [Recovering/Resolving]
  - Pyrexia [Recovering/Resolving]
